FAERS Safety Report 15462443 (Version 1)
Quarter: 2018Q4

REPORT INFORMATION
  Report Type: Spontaneous
  Country: US (occurrence: US)
  Receive Date: 20181001
  Receipt Date: 20181001
  Transmission Date: 20190204
  Serious: Yes (Other)
  Sender: FDA-Public Use
  Company Number: None

PATIENT
  Age: 67 Year
  Sex: Female
  Weight: 83.46 kg

DRUGS (11)
  1. DIOVAN [Suspect]
     Active Substance: VALSARTAN
     Indication: ARRHYTHMIA
     Dosage: ?          OTHER STRENGTH:80MG, 160MG, ;OTHER FREQUENCY:IN THE AM;?
     Route: 048
     Dates: start: 20120522
  2. GABAPENTIN 100 MG [Concomitant]
     Active Substance: GABAPENTIN
  3. METOPROL 225MG [Concomitant]
  4. VALSARTAN. [Suspect]
     Active Substance: VALSARTAN
  5. AMLODIPINE [Concomitant]
     Active Substance: AMLODIPINE BESYLATE
  6. CITALOPRIM [Concomitant]
  7. VALSARTAN HCTZ [Suspect]
     Active Substance: HYDROCHLOROTHIAZIDE\VALSARTAN
  8. VITAMIN D [Concomitant]
     Active Substance: CHOLECALCIFEROL
  9. COUMADIN [Concomitant]
     Active Substance: WARFARIN SODIUM
  10. CALCIUM CARBONATE 500 MG [Concomitant]
     Active Substance: CALCIUM CARBONATE
  11. DIOVAN [Suspect]
     Active Substance: VALSARTAN
     Indication: HYPERTENSION
     Dosage: ?          OTHER STRENGTH:80MG, 160MG, ;OTHER FREQUENCY:IN THE AM;?
     Route: 048
     Dates: start: 20120522

REACTIONS (1)
  - Malignant melanoma [None]

NARRATIVE: CASE EVENT DATE: 20160620
